FAERS Safety Report 20814396 (Version 3)
Quarter: 2022Q2

REPORT INFORMATION
  Report Type: Spontaneous
  Country: AU (occurrence: AU)
  Receive Date: 20220511
  Receipt Date: 20220603
  Transmission Date: 20220720
  Serious: Yes (Other)
  Sender: FDA-Public Use
  Company Number: AU-SCALL-2022-AU-000097

PATIENT
  Age: 85 Year
  Sex: Male

DRUGS (3)
  1. DUTASTERIDE\TAMSULOSIN HYDROCHLORIDE [Suspect]
     Active Substance: DUTASTERIDE\TAMSULOSIN HYDROCHLORIDE
     Indication: Prostatic specific antigen increased
     Dosage: 1 DF, QD AFTER FOOD
     Route: 065
     Dates: start: 20220329
  2. RAMIPRIL [Concomitant]
     Active Substance: RAMIPRIL
     Route: 065
  3. CRESTOR [Suspect]
     Active Substance: ROSUVASTATIN CALCIUM
     Route: 065

REACTIONS (7)
  - Urinary retention [Recovering/Resolving]
  - Dysuria [Recovering/Resolving]
  - Urine abnormality [Recovering/Resolving]
  - Pollakiuria [Recovering/Resolving]
  - Faeces soft [Recovering/Resolving]
  - Product complaint [Unknown]
  - Malaise [Unknown]

NARRATIVE: CASE EVENT DATE: 20220330
